FAERS Safety Report 9743170 (Version 2)
Quarter: 2015Q3

REPORT INFORMATION
  Report Type: Spontaneous
  Country: US (occurrence: US)
  Receive Date: 20131210
  Receipt Date: 20150804
  Transmission Date: 20151125
  Serious: No
  Sender: FDA-Public Use
  Company Number: US-GILEAD-2009-0024924

PATIENT
  Age: 65 Year
  Sex: Female
  Weight: 81.65 kg

DRUGS (16)
  1. DIOVAN [Concomitant]
     Active Substance: VALSARTAN
  2. LETAIRIS [Suspect]
     Active Substance: AMBRISENTAN
     Indication: PULMONARY ARTERIAL HYPERTENSION
     Route: 048
     Dates: start: 20090902
  3. HCTZ [Concomitant]
     Active Substance: HYDROCHLOROTHIAZIDE
  4. ELIDEL 1% [Concomitant]
  5. MELOXICAM. [Concomitant]
     Active Substance: MELOXICAM
  6. LUNESTA [Concomitant]
     Active Substance: ESZOPICLONE
  7. CELEBREX [Concomitant]
     Active Substance: CELECOXIB
  8. CRESTOR [Concomitant]
     Active Substance: ROSUVASTATIN CALCIUM
  9. TOPAMAX [Concomitant]
     Active Substance: TOPIRAMATE
  10. CITALOPRAM [Concomitant]
     Active Substance: CITALOPRAM HYDROBROMIDE
  11. BACTRIM DS [Concomitant]
     Active Substance: SULFAMETHOXAZOLE\TRIMETHOPRIM
  12. SYNTHROID [Concomitant]
     Active Substance: LEVOTHYROXINE SODIUM
  13. ALPHAGAN P [Concomitant]
     Active Substance: BRIMONIDINE TARTRATE
  14. PROVENTIL [Concomitant]
     Active Substance: ALBUTEROL
  15. CORDRAN SP [Concomitant]
     Active Substance: FLURANDRENOLIDE
  16. ASPIRIN. [Concomitant]
     Active Substance: ASPIRIN

REACTIONS (1)
  - Palpitations [Unknown]
